FAERS Safety Report 7060466-8 (Version None)
Quarter: 2010Q4

REPORT INFORMATION
  Report Type: 
  Country: None (occurrence: None)
  Receive Date: 20101025
  Receipt Date: 20101011
  Transmission Date: 20110411
  Serious: Yes (Other)
  Sender: FDA-Public Use
  Company Number: US-ELI_LILLY_AND_COMPANY-US201009004558

PATIENT
  Sex: Female

DRUGS (1)
  1. UNKNOWN PRODUCT [Suspect]

REACTIONS (1)
  - NEOPLASM MALIGNANT [None]
